FAERS Safety Report 12615280 (Version 1)
Quarter: 2016Q3

REPORT INFORMATION
  Report Type: Spontaneous
  Country: US (occurrence: US)
  Receive Date: 20160802
  Receipt Date: 20160802
  Transmission Date: 20161109
  Serious: No
  Sender: FDA-Public Use
  Company Number: US-BEH-2016071687

PATIENT
  Sex: Female
  Weight: 86.17 kg

DRUGS (26)
  1. HIZENTRA [Suspect]
     Active Substance: HUMAN IMMUNOGLOBULIN G
     Indication: IMMUNODEFICIENCY COMMON VARIABLE
     Dosage: UNK
     Route: 058
  2. HIZENTRA [Suspect]
     Active Substance: HUMAN IMMUNOGLOBULIN G
     Dosage: 10 G, QW
     Route: 058
     Dates: start: 20110623
  3. MONISTAT [Concomitant]
     Active Substance: MICONAZOLE NITRATE
  4. PROBIOTIC                          /06395501/ [Concomitant]
     Active Substance: BIFIDOBACTERIUM ANIMALIS SUBSP. LACTIS
  5. XARELTO [Concomitant]
     Active Substance: RIVAROXABAN
  6. ADVAIR HFA [Concomitant]
     Active Substance: FLUTICASONE PROPIONATE\SALMETEROL XINAFOATE
  7. BENADRYL [Concomitant]
     Active Substance: DIPHENHYDRAMINE HYDROCHLORIDE
  8. HIZENTRA [Suspect]
     Active Substance: HUMAN IMMUNOGLOBULIN G
     Dosage: UNK
     Route: 058
  9. CLONAZEPAM. [Concomitant]
     Active Substance: CLONAZEPAM
  10. NEXIUM [Concomitant]
     Active Substance: ESOMEPRAZOLE MAGNESIUM
  11. MULTIVITAMIN                       /00097801/ [Concomitant]
     Active Substance: VITAMINS
  12. CALCIUM MAGNESIUM                  /00591201/ [Concomitant]
  13. LOTEMAX [Concomitant]
     Active Substance: LOTEPREDNOL ETABONATE
  14. DIPHENHYDRAMINE. [Concomitant]
     Active Substance: DIPHENHYDRAMINE
  15. EPIPEN [Concomitant]
     Active Substance: EPINEPHRINE
  16. HYDROCODONE [Concomitant]
     Active Substance: HYDROCODONE
  17. LIDOCAINE/PRILOCAINE [Concomitant]
     Active Substance: LIDOCAINE\PRILOCAINE
  18. CYCLOBENZAPRINE [Concomitant]
     Active Substance: CYCLOBENZAPRINE
  19. PROVENTIL [Concomitant]
     Active Substance: ALBUTEROL
  20. MELATONIN [Concomitant]
     Active Substance: MELATONIN
  21. BENEFIBER                          /00677201/ [Concomitant]
     Active Substance: ICODEXTRIN
  22. BACITRACIN. [Concomitant]
     Active Substance: BACITRACIN
  23. ALLEGRA [Concomitant]
     Active Substance: FEXOFENADINE HYDROCHLORIDE
  24. SINGULAIR [Concomitant]
     Active Substance: MONTELUKAST SODIUM
  25. SERTRALINE [Concomitant]
     Active Substance: SERTRALINE HYDROCHLORIDE
  26. SYNTHROID [Concomitant]
     Active Substance: LEVOTHYROXINE SODIUM

REACTIONS (1)
  - Sinusitis [Unknown]
